FAERS Safety Report 7220950-0 (Version None)
Quarter: 2011Q1

REPORT INFORMATION
  Report Type: 
  Country: None (occurrence: None)
  Receive Date: 20110112
  Receipt Date: 20101229
  Transmission Date: 20110831
  Serious: Yes (Other)
  Sender: FDA-Public Use
  Company Number: PT-RANBAXY-2010RR-40960

PATIENT
  Sex: Female

DRUGS (2)
  1. METHYLDOPA [Concomitant]
  2. LISINOPRIL [Suspect]
     Dosage: 10 MG, UNK

REACTIONS (2)
  - DRUG EXPOSURE DURING PREGNANCY [None]
  - PREMATURE LABOUR [None]
